FAERS Safety Report 17977101 (Version 2)
Quarter: 2020Q3

REPORT INFORMATION
  Report Type: Spontaneous
  Country: US (occurrence: US)
  Receive Date: 20200702
  Receipt Date: 20200817
  Transmission Date: 20201103
  Serious: Yes (Other)
  Sender: FDA-Public Use
  Company Number: US-AMGEN-USASP2020105258

PATIENT
  Age: 62 Year
  Sex: Female

DRUGS (2)
  1. TRAZODONE [Concomitant]
     Active Substance: TRAZODONE HYDROCHLORIDE
     Dosage: UNK
  2. OTEZLA [Suspect]
     Active Substance: APREMILAST
     Indication: PSORIATIC ARTHROPATHY
     Dosage: 30 MILLIGRAM, BID
     Route: 048
     Dates: start: 20181010

REACTIONS (2)
  - Fibromyalgia [Not Recovered/Not Resolved]
  - Psoriatic arthropathy [Recovered/Resolved]

NARRATIVE: CASE EVENT DATE: 2020
